FAERS Safety Report 11356296 (Version 3)
Quarter: 2015Q4

REPORT INFORMATION
  Report Type: Report from Study
  Country: US (occurrence: US)
  Receive Date: 20150807
  Receipt Date: 20151019
  Transmission Date: 20160304
  Serious: Yes (Hospitalization, Other)
  Sender: FDA-Public Use
  Company Number: US-GILEAD-2015-0166403

PATIENT
  Sex: Male
  Weight: 74 kg

DRUGS (5)
  1. AMBRISENTAN [Suspect]
     Active Substance: AMBRISENTAN
     Indication: PULMONARY ARTERIAL HYPERTENSION
     Dosage: 10 MG, QD
     Route: 065
     Dates: start: 20110525
  2. DEPO-MEDROL [Suspect]
     Active Substance: METHYLPREDNISOLONE ACETATE
     Indication: PRODUCT USED FOR UNKNOWN INDICATION
     Route: 065
  3. TYVASO [Suspect]
     Active Substance: TREPROSTINIL
     Indication: PULMONARY ARTERIAL HYPERTENSION
     Dosage: 18-54 UG, QID
     Route: 055
     Dates: start: 20110527
  4. TYVASO [Suspect]
     Active Substance: TREPROSTINIL
     Dosage: 18-54 UG, QID
     Route: 055
     Dates: start: 20110622
  5. TYVASO [Suspect]
     Active Substance: TREPROSTINIL
     Dosage: 18-54 UG, QID
     Route: 055

REACTIONS (4)
  - Pulmonary embolism [Unknown]
  - Compression fracture [Unknown]
  - Back pain [Unknown]
  - Surgery [Unknown]

NARRATIVE: CASE EVENT DATE: 2015
